FAERS Safety Report 17037029 (Version 1)
Quarter: 2019Q4

REPORT INFORMATION
  Report Type: Spontaneous
  Country: GB (occurrence: GB)
  Receive Date: 20191115
  Receipt Date: 20191115
  Transmission Date: 20200122
  Serious: Yes (Hospitalization, Other)
  Sender: FDA-Public Use
  Company Number: GB-PFIZER INC-2019488380

PATIENT
  Age: 42 Year
  Sex: Female

DRUGS (6)
  1. CYTARABINE. [Suspect]
     Active Substance: CYTARABINE
     Indication: ACUTE MYELOID LEUKAEMIA
     Dosage: UNK
  2. DAUNORUBICIN [Suspect]
     Active Substance: DAUNORUBICIN
     Indication: ACUTE MYELOID LEUKAEMIA
     Dosage: UNK
  3. DAUNORUBICIN [Suspect]
     Active Substance: DAUNORUBICIN
     Dosage: UNK
  4. CYTARABINE. [Suspect]
     Active Substance: CYTARABINE
     Dosage: UNK
  5. CYTARABINE. [Suspect]
     Active Substance: CYTARABINE
     Dosage: UNK
  6. CYTARABINE. [Suspect]
     Active Substance: CYTARABINE
     Dosage: UNK

REACTIONS (19)
  - Clostridium difficile infection [Unknown]
  - Fatigue [Unknown]
  - Urinary tract infection [Unknown]
  - Vision blurred [Recovered/Resolved]
  - Neutropenic sepsis [Unknown]
  - Rash [Unknown]
  - Infection [Unknown]
  - Joint stiffness [Unknown]
  - Pain [Unknown]
  - Weight decreased [Unknown]
  - Tremor [Unknown]
  - Pyrexia [Unknown]
  - Feeling cold [Unknown]
  - Bone pain [Unknown]
  - Asthenia [Unknown]
  - Lymphadenopathy [Unknown]
  - Mucosal inflammation [Unknown]
  - Alopecia [Unknown]
  - Hypotension [Unknown]
